FAERS Safety Report 5010205-7 (Version None)
Quarter: 2006Q2

REPORT INFORMATION
  Report Type: 
  Country: None (occurrence: None)
  Receive Date: 20060404
  Receipt Date: 20051107
  Transmission Date: 20061013
  Serious: Yes (Death)
  Sender: FDA-Public Use
  Company Number: USA0510110511

PATIENT
  Age: 35 Year
  Sex: Female
  Weight: 59.1 kg

DRUGS (4)
  1. CYMBALTA [Suspect]
     Indication: BIPOLAR DISORDER
     Dosage: 20 MG, EACH MORNING
     Route: 048
     Dates: start: 20050915
  2. XANAX [Concomitant]
  3. SEROQUEL [Concomitant]
  4. LEXAPRO [Concomitant]

REACTIONS (2)
  - COMPLETED SUICIDE [None]
  - WEIGHT INCREASED [None]
